FAERS Safety Report 9214465 (Version 1)
Quarter: 2013Q1

REPORT INFORMATION
  Report Type: Spontaneous
  Country: US (occurrence: None)
  Receive Date: 20120827
  Receipt Date: 20120827
  Transmission Date: 20140127
  Serious: No
  Sender: FDA-Public Use
  Company Number: 355543

PATIENT
  Age: 70 Year
  Sex: Male

DRUGS (1)
  1. VICTOZA (LIRAGLUTIDE) SOLUTION FOR INJECTION [Suspect]
     Indication: TYPE 2 DIABETES MELLITUS
     Route: 058

REACTIONS (9)
  - Back pain [None]
  - Dizziness [None]
  - Flatulence [None]
  - Eructation [None]
  - Fatigue [None]
  - Decreased appetite [None]
  - Diarrhoea [None]
  - Nausea [None]
  - Headache [None]
